FAERS Safety Report 6923153-X (Version None)
Quarter: 2010Q3

REPORT INFORMATION
  Report Type: 
  Country: None (occurrence: None)
  Receive Date: 20100811
  Receipt Date: 20100726
  Transmission Date: 20110219
  Serious: Yes (Life-Threatening, Hospitalization, Other)
  Sender: FDA-Public Use
  Company Number: US-ACCORD-005809

PATIENT
  Age: 71 Year

DRUGS (7)
  1. MITOMYCIN [Suspect]
     Indication: PANCREATIC CARCINOMA
     Dosage: 7.00-MG/M2
  2. OXALIPLATIN [Suspect]
     Indication: PANCREATIC CARCINOMA
  3. DOCETAXEL [Concomitant]
  4. CAPECITABINE [Concomitant]
  5. GEMCITABINE [Concomitant]
  6. IRINOTECAN HCL [Concomitant]
  7. CETUXIMAB (CETUXIMAB) [Concomitant]

REACTIONS (8)
  - BRONCHOALVEOLAR LAVAGE ABNORMAL [None]
  - DRUG HYPERSENSITIVITY [None]
  - INTERSTITIAL LUNG DISEASE [None]
  - OFF LABEL USE [None]
  - PULMONARY HYPERTENSION [None]
  - RESPIRATORY FAILURE [None]
  - SERRATIA TEST POSITIVE [None]
  - STAPHYLOCOCCUS TEST POSITIVE [None]
